FAERS Safety Report 9834905 (Version 2)
Quarter: 2014Q1

REPORT INFORMATION
  Report Type: Spontaneous
  Country: US (occurrence: US)
  Receive Date: 20140122
  Receipt Date: 20140122
  Transmission Date: 20141002
  Serious: Yes (Hospitalization)
  Sender: FDA-Public Use
  Company Number: US-B.I. PHARMACEUTICALS,INC./RIDGEFIELD-2013-BI-23850BP

PATIENT
  Age: 84 Year
  Sex: Female
  Weight: 68.04 kg

DRUGS (10)
  1. PRADAXA [Suspect]
     Indication: ATRIAL FIBRILLATION
     Dosage: 300 MG
     Route: 048
     Dates: start: 20120423, end: 20120504
  2. CARDIZEM CD [Concomitant]
     Dosage: 120 MG
  3. TENORMIN [Concomitant]
     Dosage: 25 MG
  4. HYDROCHLOROTHIAZIDE [Concomitant]
     Dosage: 25 MG
  5. LEVOTHROID [Concomitant]
     Dosage: 50 MCG
  6. DIOVAN [Concomitant]
     Dosage: 80 MG
  7. OMEPRAZOLE [Concomitant]
     Dosage: 20 MG
  8. CITRACAL + D [Concomitant]
  9. VITAMIN D3 [Concomitant]
  10. MULTIVITAMIN [Concomitant]

REACTIONS (2)
  - Gastrointestinal haemorrhage [Unknown]
  - Anaemia [Unknown]
